FAERS Safety Report 6382765-5 (Version None)
Quarter: 2009Q3

REPORT INFORMATION
  Report Type: 
  Country: None (occurrence: None)
  Receive Date: 20090928
  Receipt Date: 20090928
  Transmission Date: 20100115
  Serious: Yes (Life-Threatening, Hospitalization, Disabling, Other)
  Sender: FDA-Public Use
  Company Number: None

PATIENT
  Age: 41 Year
  Sex: Female
  Weight: 104.3273 kg

DRUGS (2)
  1. CYMBALTA [Suspect]
     Indication: DEPRESSION
     Dosage: 1 PILL 1 TIME A DAY PO
     Route: 048
     Dates: start: 20090101, end: 20090501
  2. CYMBALTA [Suspect]
     Indication: NEURALGIA
     Dosage: 1 PILL 2 TIMES A DAY PO
     Route: 048
     Dates: start: 20090101, end: 20090501

REACTIONS (19)
  - AGITATION [None]
  - AMENORRHOEA [None]
  - ANXIETY [None]
  - BLOOD GLUCOSE INCREASED [None]
  - CONDITION AGGRAVATED [None]
  - CRYING [None]
  - DIZZINESS [None]
  - DRUG INEFFECTIVE [None]
  - DRUG WITHDRAWAL SYNDROME [None]
  - FATIGUE [None]
  - GAIT DISTURBANCE [None]
  - MUSCLE SPASMS [None]
  - NAUSEA [None]
  - NERVE INJURY [None]
  - PALPITATIONS [None]
  - SCIATICA [None]
  - SCREAMING [None]
  - VISION BLURRED [None]
  - WEIGHT INCREASED [None]
